FAERS Safety Report 15147621 (Version 1)
Quarter: 2018Q3

REPORT INFORMATION
  Report Type: Spontaneous
  Country: US (occurrence: US)
  Receive Date: 20180716
  Receipt Date: 20180716
  Transmission Date: 20181010
  Serious: No
  Sender: FDA-Public Use
  Company Number: US-PFIZER INC-2018284178

PATIENT
  Age: 71 Year
  Sex: Female
  Weight: 67.12 kg

DRUGS (2)
  1. LETROZOLE. [Suspect]
     Active Substance: LETROZOLE
     Indication: BLOOD OESTROGEN
     Dosage: 2.5 MG, 1X/DAY (AT NIGHT )
     Route: 048
     Dates: start: 20180531
  2. VENLAFAXINE HCL [Suspect]
     Active Substance: VENLAFAXINE HYDROCHLORIDE
     Dosage: 150 MG, 1X/DAY (AT NIGHT )
     Route: 048
     Dates: start: 20180616

REACTIONS (1)
  - Nausea [Unknown]
